FAERS Safety Report 14099202 (Version 1)
Quarter: 2017Q4

REPORT INFORMATION
  Report Type: Spontaneous
  Country: HU (occurrence: HU)
  Receive Date: 20171017
  Receipt Date: 20171017
  Transmission Date: 20180321
  Serious: Yes (Other)
  Sender: FDA-Public Use
  Company Number: HU-NATCO PHARMA-2017NAT00089

PATIENT

DRUGS (2)
  1. ONDANSETRON [Suspect]
     Active Substance: ONDANSETRON
     Indication: PROPHYLAXIS OF NAUSEA AND VOMITING
     Dosage: 3 X 150 ?G/KG (EVERY 4 H), UP TO A MAXTOTAL DOSE OF 32 MG
     Route: 042
  2. UNSPECIFIED CHEMOTHERAPY [Concomitant]
     Active Substance: UNSPECIFIED INGREDIENT
     Route: 065

REACTIONS (1)
  - Hypertension [Unknown]
